FAERS Safety Report 19473138 (Version 1)
Quarter: 2021Q2

REPORT INFORMATION
  Report Type: Spontaneous
  Country: DE (occurrence: DE)
  Receive Date: 20210629
  Receipt Date: 20210629
  Transmission Date: 20210717
  Serious: Yes (Life-Threatening, Hospitalization)
  Sender: FDA-Public Use
  Company Number: DE-ASTRAZENECA-2021A566374

PATIENT
  Age: 68 Year
  Sex: Male
  Weight: 134 kg

DRUGS (1)
  1. DAXAS [Suspect]
     Active Substance: ROFLUMILAST
     Route: 048

REACTIONS (2)
  - Treatment noncompliance [Unknown]
  - Respiratory failure [Unknown]
